FAERS Safety Report 6211786-8 (Version None)
Quarter: 2009Q2

REPORT INFORMATION
  Report Type: 
  Country: None (occurrence: None)
  Receive Date: 20090528
  Receipt Date: 20090512
  Transmission Date: 20091009
  Serious: Yes (Death)
  Sender: FDA-Public Use
  Company Number: 2009001445

PATIENT
  Age: 66 Year
  Sex: Female

DRUGS (3)
  1. ERLOTINIB (ERLOTINIB) (TABLET) (ERLOTINIB) [Suspect]
     Dosage: (150 MG, QD), ORAL
     Route: 048
     Dates: start: 20090403, end: 20090505
  2. CAPECITABINE (CAPECITABINE) [Suspect]
     Dosage: (1000 MG, BID), ORAL
     Route: 048
     Dates: start: 20090403
  3. TRIHEXYPHENIDYL HCL [Concomitant]

REACTIONS (6)
  - BLOOD ALBUMIN DECREASED [None]
  - HAEMOGLOBIN DECREASED [None]
  - LABORATORY TEST ABNORMAL [None]
  - PROTEIN TOTAL DECREASED [None]
  - RESPIRATORY FAILURE [None]
  - WHITE BLOOD CELL COUNT INCREASED [None]
